FAERS Safety Report 12745327 (Version 1)
Quarter: 2016Q3

REPORT INFORMATION
  Report Type: Report from Study
  Country: US (occurrence: US)
  Receive Date: 20160915
  Receipt Date: 20160915
  Transmission Date: 20161109
  Serious: Yes (Hospitalization)
  Sender: FDA-Public Use
  Company Number: PHHY2016US124103

PATIENT
  Age: 35 Year
  Sex: Female
  Weight: 71.8 kg

DRUGS (2)
  1. GENERIC LETROZOLE [Suspect]
     Active Substance: LETROZOLE
     Indication: BREAST CANCER
     Dosage: 2.5 MG, QD
     Route: 048
     Dates: start: 20130801
  2. PALBOCICLIB [Suspect]
     Active Substance: PALBOCICLIB
     Indication: BREAST CANCER
     Dosage: 100 MG, QD CYCLIC (FOR 21 DAYS OF 28 DAY CYCLE)
     Route: 065
     Dates: start: 20130801

REACTIONS (7)
  - Haematoma [Unknown]
  - Lumbar vertebral fracture [Recovered/Resolved]
  - Nerve root compression [Unknown]
  - Myalgia [Not Recovered/Not Resolved]
  - Fractured coccyx [Recovered/Resolved]
  - Fall [Unknown]
  - Hot flush [Not Recovered/Not Resolved]

NARRATIVE: CASE EVENT DATE: 20140916
